FAERS Safety Report 10756162 (Version 1)
Quarter: 2015Q1

REPORT INFORMATION
  Report Type: Spontaneous
  Country: DK (occurrence: GB)
  Receive Date: 20150202
  Receipt Date: 20150202
  Transmission Date: 20150721
  Serious: Yes (Death)
  Sender: FDA-Public Use
  Company Number: GB-FRI-1000074095

PATIENT
  Age: 67 Year
  Sex: Female
  Weight: 62.7 kg

DRUGS (10)
  1. CLOZARIL [Suspect]
     Active Substance: CLOZAPINE
     Indication: SCHIZOPHRENIA
     Route: 048
     Dates: start: 20030424
  2. CLOZAPINE. [Suspect]
     Active Substance: CLOZAPINE
     Indication: PSYCHOTIC DISORDER
     Route: 048
  3. SODIUM VALPROATE [Concomitant]
     Active Substance: VALPROATE SODIUM
     Indication: EPILEPSY
     Dosage: 1 DF
     Route: 065
     Dates: start: 20140123, end: 20141120
  4. CITALOPRAM [Suspect]
     Active Substance: CITALOPRAM HYDROBROMIDE
     Indication: ANTIDEPRESSANT THERAPY
     Dosage: 10 MG
     Route: 048
     Dates: start: 20140123, end: 20141120
  5. EPILIM [Suspect]
     Active Substance: VALPROATE SODIUM
     Indication: EPILEPSY
     Dosage: 600 MG
     Route: 048
     Dates: start: 20140123, end: 20141120
  6. PROCYCLIDINE [Suspect]
     Active Substance: PROCYCLIDINE
     Indication: SCHIZOPHRENIA
  7. OMEPRAZOLE. [Concomitant]
     Active Substance: OMEPRAZOLE
     Indication: SCHIZOPHRENIA
     Dosage: 20 MG ONCE DAILY
     Route: 065
     Dates: start: 20140123, end: 20141120
  8. PARACETAMOL [Concomitant]
     Active Substance: ACETAMINOPHEN
     Indication: GENERALISED TONIC-CLONIC SEIZURE
     Route: 065
     Dates: start: 20140123, end: 20140826
  9. PROCYCLIDINE [Suspect]
     Active Substance: PROCYCLIDINE
     Indication: CHOLINERGIC SYNDROME
     Route: 048
     Dates: start: 20140123, end: 20141120
  10. LACTULOSE. [Concomitant]
     Active Substance: LACTULOSE
     Indication: PRODUCT USED FOR UNKNOWN INDICATION
     Dosage: 2 DF
     Route: 065
     Dates: start: 20140215, end: 20141120

REACTIONS (6)
  - Activated partial thromboplastin time abnormal [Fatal]
  - Arteriosclerosis coronary artery [Fatal]
  - Myocardial ischaemia [Fatal]
  - Pulmonary oedema [Fatal]
  - Myocardial fibrosis [Not Recovered/Not Resolved]
  - Coronary artery stenosis [Fatal]

NARRATIVE: CASE EVENT DATE: 20141202
